FAERS Safety Report 22310280 (Version 1)
Quarter: 2023Q2

REPORT INFORMATION
  Report Type: Spontaneous
  Country: US (occurrence: US)
  Receive Date: 20230511
  Receipt Date: 20230511
  Transmission Date: 20230722
  Serious: No
  Sender: FDA-Public Use
  Company Number: US-PERRIGO-22US011981

PATIENT
  Age: 62 Year
  Sex: Female
  Weight: 70.295 kg

DRUGS (3)
  1. MICONAZOLE 3 COMBINATION PACK [Suspect]
     Active Substance: MICONAZOLE NITRATE
     Indication: Vulvovaginal mycotic infection
     Dosage: 200 MG, QD IN AM
     Route: 067
     Dates: start: 20220905, end: 20220906
  2. KLONOPIN [Concomitant]
     Active Substance: CLONAZEPAM
     Indication: Insomnia
     Dosage: UNKNOWN, UNKNOWN
     Route: 065
     Dates: start: 2019
  3. SEROQUEL [Concomitant]
     Active Substance: QUETIAPINE FUMARATE
     Indication: Insomnia
     Dosage: UNKNOWN, UNKNOWN
     Route: 065
     Dates: start: 2019

REACTIONS (4)
  - Flatulence [Recovering/Resolving]
  - Abdominal distension [Recovering/Resolving]
  - Abdominal pain [Recovering/Resolving]
  - Inappropriate schedule of product administration [Unknown]

NARRATIVE: CASE EVENT DATE: 20220905
